FAERS Safety Report 13383448 (Version 1)
Quarter: 2017Q1

REPORT INFORMATION
  Report Type: Spontaneous
  Country: JP (occurrence: JP)
  Receive Date: 20170329
  Receipt Date: 20170329
  Transmission Date: 20170429
  Serious: Yes (Other)
  Sender: FDA-Public Use
  Company Number: JP-REGENERON PHARMACEUTICALS, INC.-2017-13515

PATIENT

DRUGS (1)
  1. EYLEA [Suspect]
     Active Substance: AFLIBERCEPT
     Indication: CHOROIDAL NEOVASCULARISATION
     Route: 031

REACTIONS (1)
  - Macular hole [Recovered/Resolved]
